FAERS Safety Report 12618451 (Version 1)
Quarter: 2016Q3

REPORT INFORMATION
  Report Type: Spontaneous
  Country: CA (occurrence: CA)
  Receive Date: 20160803
  Receipt Date: 20160803
  Transmission Date: 20161109
  Serious: Yes (Hospitalization, Other)
  Sender: FDA-Public Use
  Company Number: CA-GLAXOSMITHKLINE-CA2016GSK109401

PATIENT
  Age: 39 Year
  Sex: Male

DRUGS (6)
  1. OLANZAPINE. [Interacting]
     Active Substance: OLANZAPINE
     Indication: PRODUCT USED FOR UNKNOWN INDICATION
  2. BUPROPION. [Suspect]
     Active Substance: BUPROPION
     Indication: PRODUCT USED FOR UNKNOWN INDICATION
  3. PHENYTOIN. [Interacting]
     Active Substance: PHENYTOIN
     Indication: PRODUCT USED FOR UNKNOWN INDICATION
  4. PRIMIDONE. [Interacting]
     Active Substance: PRIMIDONE
     Indication: PRODUCT USED FOR UNKNOWN INDICATION
  5. ESCITALOPRAM [Interacting]
     Active Substance: ESCITALOPRAM OXALATE
     Indication: PRODUCT USED FOR UNKNOWN INDICATION
  6. QUETIAPINE. [Interacting]
     Active Substance: QUETIAPINE
     Indication: PRODUCT USED FOR UNKNOWN INDICATION

REACTIONS (21)
  - Incoherent [Recovered/Resolved]
  - Delirium [Recovered/Resolved]
  - Tachycardia [Recovered/Resolved]
  - Hyperhidrosis [Recovered/Resolved]
  - Myoclonus [Recovered/Resolved]
  - Muscle rigidity [Recovered/Resolved]
  - Pneumonia [Recovered/Resolved]
  - Cognitive disorder [Recovered/Resolved]
  - Device related sepsis [Recovered/Resolved]
  - Drug interaction [Unknown]
  - Confusional state [Recovered/Resolved]
  - Overdose [Unknown]
  - Arrhythmia [Recovered/Resolved]
  - Toxicity to various agents [Recovered/Resolved]
  - Hyperthermia [Recovered/Resolved]
  - Condition aggravated [Recovered/Resolved]
  - Agitation [Recovered/Resolved]
  - Serotonin syndrome [Recovered/Resolved]
  - Clonus [Recovered/Resolved]
  - Hyperreflexia [Recovered/Resolved]
  - Tremor [Recovered/Resolved]
